FAERS Safety Report 24572589 (Version 3)
Quarter: 2025Q3

REPORT INFORMATION
  Report Type: Report from Study
  Country: ZA (occurrence: ZA)
  Receive Date: 20241101
  Receipt Date: 20250803
  Transmission Date: 20251020
  Serious: Yes (Death, Other)
  Sender: ALEXION PHARMACEUTICALS
  Company Number: ZA-AstraZeneca-CH-00728641A

PATIENT
  Age: 48 Year
  Sex: Male

DRUGS (10)
  1. DAPAGLIFLOZIN [Suspect]
     Active Substance: DAPAGLIFLOZIN
     Indication: Diabetes mellitus
  2. Granicip [Concomitant]
  3. METOCLOPRAMIDE HYDROCHLORIDE [Concomitant]
     Active Substance: METOCLOPRAMIDE HYDROCHLORIDE
  4. MESNA [Concomitant]
     Active Substance: MESNA
  5. MESNA [Concomitant]
     Active Substance: MESNA
  6. Cipla fluconazole [Concomitant]
  7. ALLOPURINOL [Concomitant]
     Active Substance: ALLOPURINOL
  8. Dis chem paracetamol [Concomitant]
  9. Acitab [Concomitant]
  10. SULFAMETHOXAZOLE\TRIMETHOPRIM [Concomitant]
     Active Substance: SULFAMETHOXAZOLE\TRIMETHOPRIM
     Indication: Acne

REACTIONS (1)
  - Neoplasm malignant [Fatal]

NARRATIVE: CASE EVENT DATE: 20240727
